FAERS Safety Report 16745843 (Version 1)
Quarter: 2019Q4

REPORT INFORMATION
  Report Type: Spontaneous
  Country: US (occurrence: US)
  Receive Date: 20190827
  Receipt Date: 20190827
  Transmission Date: 20200122
  Serious: Yes (Hospitalization)
  Sender: FDA-Public Use
  Company Number: None

PATIENT
  Age: 60 Year
  Sex: Male

DRUGS (4)
  1. PROCHLORPER TAB 10 MG [Concomitant]
  2. LEVETIRACETA TAB 500 MG ER [Concomitant]
  3. ONDANSETRONTAB 8 MG [Concomitant]
  4. TEMOZOLOMIDE. [Suspect]
     Active Substance: TEMOZOLOMIDE
     Indication: SMALL INTESTINE CARCINOMA
     Route: 048
     Dates: start: 20190729

REACTIONS (1)
  - Nausea [None]

NARRATIVE: CASE EVENT DATE: 20190823
